FAERS Safety Report 25146645 (Version 1)
Quarter: 2025Q2

REPORT INFORMATION
  Report Type: Spontaneous
  Country: US (occurrence: US)
  Receive Date: 20250401
  Receipt Date: 20250401
  Transmission Date: 20250717
  Serious: No
  Sender: MYLAN
  Company Number: US-MYLANLABS-2025M1025412

PATIENT
  Age: 58 Year
  Sex: Female
  Weight: 48.99 kg

DRUGS (28)
  1. ESTRADIOL TRANSDERMAL SYSTEM [Suspect]
     Active Substance: ESTRADIOL
     Indication: Menopause
     Dosage: 0.075 MILLIGRAM, QD (ONCE A WEEK)
  2. ESTRADIOL TRANSDERMAL SYSTEM [Suspect]
     Active Substance: ESTRADIOL
     Dosage: 0.075 MILLIGRAM, QD (ONCE A WEEK)
     Route: 062
  3. ESTRADIOL TRANSDERMAL SYSTEM [Suspect]
     Active Substance: ESTRADIOL
     Dosage: 0.075 MILLIGRAM, QD (ONCE A WEEK)
     Route: 062
  4. ESTRADIOL TRANSDERMAL SYSTEM [Suspect]
     Active Substance: ESTRADIOL
     Dosage: 0.075 MILLIGRAM, QD (ONCE A WEEK)
  5. ATORVASTATIN [Concomitant]
     Active Substance: ATORVASTATIN
  6. ATORVASTATIN [Concomitant]
     Active Substance: ATORVASTATIN
     Route: 065
  7. ATORVASTATIN [Concomitant]
     Active Substance: ATORVASTATIN
     Route: 065
  8. ATORVASTATIN [Concomitant]
     Active Substance: ATORVASTATIN
  9. MONTELUKAST [Concomitant]
     Active Substance: MONTELUKAST
  10. MONTELUKAST [Concomitant]
     Active Substance: MONTELUKAST
     Route: 065
  11. MONTELUKAST [Concomitant]
     Active Substance: MONTELUKAST
     Route: 065
  12. MONTELUKAST [Concomitant]
     Active Substance: MONTELUKAST
  13. CLARITIN [Concomitant]
     Active Substance: LORATADINE
  14. CLARITIN [Concomitant]
     Active Substance: LORATADINE
     Route: 065
  15. CLARITIN [Concomitant]
     Active Substance: LORATADINE
     Route: 065
  16. CLARITIN [Concomitant]
     Active Substance: LORATADINE
  17. SUDAFED [Concomitant]
     Active Substance: PSEUDOEPHEDRINE HYDROCHLORIDE
  18. SUDAFED [Concomitant]
     Active Substance: PSEUDOEPHEDRINE HYDROCHLORIDE
     Route: 065
  19. SUDAFED [Concomitant]
     Active Substance: PSEUDOEPHEDRINE HYDROCHLORIDE
     Route: 065
  20. SUDAFED [Concomitant]
     Active Substance: PSEUDOEPHEDRINE HYDROCHLORIDE
  21. CALCIUM [Concomitant]
     Active Substance: CALCIUM
  22. CALCIUM [Concomitant]
     Active Substance: CALCIUM
     Route: 065
  23. CALCIUM [Concomitant]
     Active Substance: CALCIUM
     Route: 065
  24. CALCIUM [Concomitant]
     Active Substance: CALCIUM
  25. VITAMIN D [Concomitant]
     Active Substance: VITAMIN D NOS
  26. VITAMIN D [Concomitant]
     Active Substance: VITAMIN D NOS
     Route: 065
  27. VITAMIN D [Concomitant]
     Active Substance: VITAMIN D NOS
     Route: 065
  28. VITAMIN D [Concomitant]
     Active Substance: VITAMIN D NOS

REACTIONS (2)
  - Application site rash [Recovering/Resolving]
  - Product adhesion issue [Unknown]

NARRATIVE: CASE EVENT DATE: 20250301
